FAERS Safety Report 18276879 (Version 3)
Quarter: 2021Q1

REPORT INFORMATION
  Report Type: Spontaneous
  Country: US (occurrence: US)
  Receive Date: 20200917
  Receipt Date: 20210104
  Transmission Date: 20210419
  Serious: Yes (Disabling, Other)
  Sender: FDA-Public Use
  Company Number: US-REGENERON PHARMACEUTICALS, INC.-2020-74853

PATIENT

DRUGS (3)
  1. EYLEA [Suspect]
     Active Substance: AFLIBERCEPT
     Indication: NEOVASCULAR AGE-RELATED MACULAR DEGENERATION
     Dosage: 40 MG/ML, 0.05CC, Q6W, LEFT EYE
     Route: 031
     Dates: start: 20180424
  2. EYLEA [Suspect]
     Active Substance: AFLIBERCEPT
     Dosage: 40 MG/ML, 0.05CC, Q4W, RIGHT EYE
     Route: 031
     Dates: start: 20180503
  3. EYLEA [Suspect]
     Active Substance: AFLIBERCEPT
     Dosage: 40 MG/ML, 0.05CC, Q4W, RIGHT EYE
     Route: 031
     Dates: start: 20200814, end: 20200814

REACTIONS (4)
  - Blindness unilateral [Unknown]
  - Blindness transient [Recovering/Resolving]
  - Uveitis [Recovered/Resolved]
  - Vitrectomy [Recovered/Resolved]

NARRATIVE: CASE EVENT DATE: 20200826
